FAERS Safety Report 7374200-5 (Version None)
Quarter: 2011Q1

REPORT INFORMATION
  Report Type: 
  Country: None (occurrence: None)
  Receive Date: 20110325
  Receipt Date: 20090306
  Transmission Date: 20110831
  Serious: Yes (Disabling, Other)
  Sender: FDA-Public Use
  Company Number: US-BAYER-200914685NA

PATIENT
  Sex: Male
  Weight: 101.59 kg

DRUGS (25)
  1. ACETYLSALICYLIC ACID SRT [Concomitant]
     Indication: PRODUCT USED FOR UNKNOWN INDICATION
     Dosage: 81 MG, QD
     Route: 048
  2. LEVOPHED [Concomitant]
     Indication: PRODUCT USED FOR UNKNOWN INDICATION
     Dosage: 5 MCG
     Route: 042
     Dates: start: 20010806
  3. PLAVIX [Concomitant]
     Indication: PRODUCT USED FOR UNKNOWN INDICATION
     Dosage: 75 MG, QD
     Route: 048
     Dates: start: 20010606
  4. TRIDIL [Concomitant]
     Indication: PRODUCT USED FOR UNKNOWN INDICATION
     Dosage: IV DRIP
     Route: 042
     Dates: start: 20010606
  5. LASIX [Concomitant]
     Indication: HYPERTENSION
     Dosage: UNK
     Dates: start: 20000101
  6. SUCCINYLCHOLINE CHLORIDE [Concomitant]
     Indication: PRODUCT USED FOR UNKNOWN INDICATION
     Dosage: 110 MCG
     Route: 042
     Dates: start: 20010806, end: 20010806
  7. TRASYLOL [Suspect]
     Indication: AORTIC VALVE REPLACEMENT
     Dosage: INITIAL DOSE 1ML
     Route: 042
     Dates: start: 20010803, end: 20010803
  8. TRASYLOL [Suspect]
     Dosage: 199ML LOADING DOSE
     Route: 042
     Dates: start: 20010803, end: 20010803
  9. ISOVUE-128 [Concomitant]
     Indication: PRODUCT USED FOR UNKNOWN INDICATION
     Dosage: 1 ML, UNK
     Route: 042
     Dates: start: 20010606
  10. LOVENOX [Concomitant]
     Indication: PRODUCT USED FOR UNKNOWN INDICATION
     Dosage: 1MG/KG DAILY
     Route: 058
     Dates: start: 20010605
  11. HYZAAR [Concomitant]
     Indication: PRODUCT USED FOR UNKNOWN INDICATION
     Dosage: 50 MG, QD
     Route: 048
  12. FENTANYL [Concomitant]
     Indication: PRODUCT USED FOR UNKNOWN INDICATION
     Dosage: 50 MCG
     Route: 042
     Dates: start: 20010606
  13. ANCEF [Concomitant]
     Indication: PRODUCT USED FOR UNKNOWN INDICATION
     Dosage: UNK
     Route: 042
     Dates: start: 20010806, end: 20010806
  14. PROPOFOL [Concomitant]
     Indication: PRODUCT USED FOR UNKNOWN INDICATION
     Dosage: 120 MG
     Route: 042
     Dates: start: 20010806, end: 20010806
  15. DOBUTREX [Concomitant]
     Indication: PRODUCT USED FOR UNKNOWN INDICATION
     Dosage: IV DRIP
     Route: 042
     Dates: start: 20010806
  16. MANNITOL [Concomitant]
     Indication: PRODUCT USED FOR UNKNOWN INDICATION
     Dosage: 100 ML
     Route: 042
     Dates: start: 20010806, end: 20010806
  17. NORCURON [Concomitant]
     Indication: PRODUCT USED FOR UNKNOWN INDICATION
     Dosage: 14 MG
     Route: 042
     Dates: start: 20010806, end: 20010806
  18. TRASYLOL [Suspect]
     Dosage: 200ML PER CARDIOPULMONARY BYPASS
     Route: 042
     Dates: start: 20010803, end: 20010803
  19. FENTANYL [Concomitant]
     Indication: SURGERY
     Dosage: 300 MCG
     Route: 042
     Dates: start: 20010806, end: 20010806
  20. LISINOPRIL [Concomitant]
     Indication: HYPERTENSION
     Dosage: UNK
     Dates: start: 20000101
  21. LASIX [Concomitant]
     Indication: SURGERY
     Dosage: 20 MG
     Route: 042
     Dates: start: 20010806, end: 20010806
  22. NITROGLYCERIN [Concomitant]
     Indication: PRODUCT USED FOR UNKNOWN INDICATION
     Dosage: 20 MCG
     Route: 042
     Dates: start: 20010806, end: 20010806
  23. VERSED [Concomitant]
     Indication: PRODUCT USED FOR UNKNOWN INDICATION
     Dosage: 2 MG, UNK
     Route: 042
     Dates: start: 20010606
  24. VERSED [Concomitant]
     Dosage: 5 MG
     Route: 042
     Dates: start: 20010806, end: 20010806
  25. MAGNESIUM SULFATE [Concomitant]
     Indication: PRODUCT USED FOR UNKNOWN INDICATION
     Dosage: 2 GRAMS
     Route: 042
     Dates: start: 20010806, end: 20010806

REACTIONS (15)
  - FEAR [None]
  - INJURY [None]
  - EMOTIONAL DISTRESS [None]
  - MYOCARDIAL INFARCTION [None]
  - ANXIETY [None]
  - UNEVALUABLE EVENT [None]
  - DIABETES MELLITUS [None]
  - CARDIAC DISORDER [None]
  - CHRONIC OBSTRUCTIVE PULMONARY DISEASE [None]
  - DISABILITY [None]
  - STRESS [None]
  - LUNG DISORDER [None]
  - PAIN [None]
  - ANHEDONIA [None]
  - MULTI-ORGAN FAILURE [None]
